FAERS Safety Report 20371746 (Version 1)
Quarter: 2022Q1

REPORT INFORMATION
  Report Type: Spontaneous
  Country: US (occurrence: US)
  Receive Date: 20220124
  Receipt Date: 20220124
  Transmission Date: 20220423
  Serious: No
  Sender: FDA-Public Use
  Company Number: US-SUNOVION-2022SUN000125

PATIENT
  Sex: Male

DRUGS (2)
  1. LATUDA [Suspect]
     Active Substance: LURASIDONE HYDROCHLORIDE
     Indication: Depression
     Dosage: 20 MG
     Route: 048
  2. NALTREXONE [Concomitant]
     Active Substance: NALTREXONE
     Dosage: 50 MG, BID

REACTIONS (2)
  - Feeling of despair [Unknown]
  - Mood altered [Unknown]

NARRATIVE: CASE EVENT DATE: 20220112
